FAERS Safety Report 8789495 (Version 1)
Quarter: 2012Q4

REPORT INFORMATION
  Report Type: Spontaneous
  Country: US (occurrence: None)
  Receive Date: 20120910
  Receipt Date: 20120910
  Transmission Date: 20130627
  Serious: Yes (Other)
  Sender: FDA-Public Use
  Company Number: None

PATIENT
  Age: 42 Year
  Sex: Female
  Weight: 73.9 kg

DRUGS (10)
  1. CISPLATIN [Suspect]
     Route: 042
     Dates: start: 20120612, end: 20120822
  2. COMPAZINE (PROCHLORPERAZINE MALEATE) [Concomitant]
  3. METHADONE [Concomitant]
  4. DEXAMETHASONE [Concomitant]
  5. MORPHINE [Concomitant]
  6. NEURONTIN (GAPAPENTIN) [Concomitant]
  7. KLONOPIN (CLONAZEPAM) [Concomitant]
  8. LIDOCAINE VISCOUS [Concomitant]
  9. MAALOX/DIPHENHYDRAMINE/LIDOCAINE [Concomitant]
  10. SENNA [Concomitant]

REACTIONS (1)
  - Drug hypersensitivity [None]
